FAERS Safety Report 9626764 (Version 1)
Quarter: 2013Q4

REPORT INFORMATION
  Report Type: Spontaneous
  Country: US (occurrence: US)
  Receive Date: 20131016
  Receipt Date: 20131016
  Transmission Date: 20140711
  Serious: Yes (Other)
  Sender: FDA-Public Use
  Company Number: US-GLAXOSMITHKLINE-A1045441B

PATIENT
  Sex: 0

DRUGS (1)
  1. PAXIL [Suspect]
     Indication: PRODUCT USED FOR UNKNOWN INDICATION
     Route: 064

REACTIONS (18)
  - Ventricular septal defect [Unknown]
  - Feeding disorder [Unknown]
  - Irritability [Unknown]
  - Decreased appetite [Unknown]
  - Restlessness [Unknown]
  - Learning disorder [Unknown]
  - Sensation of foreign body [Unknown]
  - Urinary hesitation [Unknown]
  - Abnormal dreams [Unknown]
  - Back pain [Unknown]
  - Chest pain [Unknown]
  - Mood swings [Unknown]
  - Tinnitus [Unknown]
  - Syncope [Unknown]
  - Hallucination [Unknown]
  - Body temperature fluctuation [Unknown]
  - Foetal exposure during pregnancy [Unknown]
  - Adverse drug reaction [Unknown]
